FAERS Safety Report 7971110-7 (Version None)
Quarter: 2011Q4

REPORT INFORMATION
  Report Type: 
  Country: None (occurrence: None)
  Receive Date: 20111212
  Receipt Date: 20111212
  Transmission Date: 20120403
  Serious: Yes (Other)
  Sender: FDA-Public Use
  Company Number: None

PATIENT
  Age: 34 Year
  Sex: Female
  Weight: 77.11 kg

DRUGS (1)
  1. MIRENA [Suspect]
     Indication: HAEMORRHAGE
     Dosage: IUD
     Route: 067
     Dates: start: 20110215, end: 20111208

REACTIONS (6)
  - DRUG INEFFECTIVE [None]
  - EPISCLERITIS [None]
  - PELVIC PAIN [None]
  - STREPTOCOCCUS TEST POSITIVE [None]
  - OVARIAN HAEMORRHAGE [None]
  - OVARIAN CYST RUPTURED [None]
